FAERS Safety Report 8505717-5 (Version None)
Quarter: 2012Q3

REPORT INFORMATION
  Report Type: 
  Country: None (occurrence: None)
  Receive Date: 20120712
  Receipt Date: 20120710
  Transmission Date: 20120928
  Serious: Yes (Hospitalization)
  Sender: FDA-Public Use
  Company Number: PHHO2010US19136

PATIENT
  Sex: Female
  Weight: 56.689 kg

DRUGS (18)
  1. DECADRON [Concomitant]
     Dosage: UNK
     Dates: start: 20101213, end: 20101213
  2. BENADRYL [Concomitant]
     Dosage: UNK
     Dates: start: 20101213, end: 20101213
  3. RANITIDINE [Concomitant]
  4. VITAMIN D [Concomitant]
     Dosage: UNK
     Dates: start: 20050101
  5. ALOXI [Concomitant]
     Dosage: UNK
     Dates: start: 20101213, end: 20101213
  6. AFINITOR [Suspect]
     Indication: BREAST CANCER METASTATIC
     Dosage: DOUBLE BLINDED
     Route: 048
     Dates: start: 20101213, end: 20101213
  7. PLACEBO [Suspect]
     Indication: BREAST CANCER METASTATIC
     Dosage: DOUBLE BLINDED
     Route: 048
     Dates: start: 20101213, end: 20101213
  8. PLACEBO [Suspect]
     Dosage: DOUBLE BLINDED
     Route: 048
     Dates: start: 20101229
  9. BEVACIZUMAB [Concomitant]
     Indication: BREAST CANCER METASTATIC
     Dosage: UNK
     Dates: start: 20101213, end: 20101213
  10. BACTRIM DS [Concomitant]
     Dosage: UNK
     Dates: start: 20101130
  11. FOSAMAX [Concomitant]
     Dosage: UNK
     Dates: start: 20050101
  12. GLYBURIDE [Concomitant]
     Dosage: UNK
     Dates: start: 20090101
  13. PACLITAXEL [Suspect]
     Indication: BREAST CANCER METASTATIC
     Dosage: 70MG/M2
     Dates: start: 20101213, end: 20101213
  14. BLINDED NO TREATMENT RECEIVED [Suspect]
     Indication: BREAST CANCER METASTATIC
     Dosage: DOUBLE BLINDED
     Route: 048
     Dates: start: 20101213, end: 20101213
  15. AFINITOR [Suspect]
     Dosage: DOUBLE BLINDED
     Route: 048
     Dates: start: 20101229
  16. BLINDED NO TREATMENT RECEIVED [Suspect]
     Dosage: DOUBLE BLINDED
     Route: 048
     Dates: start: 20101229
  17. LISINOPRIL [Concomitant]
     Dosage: UNK
     Dates: start: 20100101
  18. JANUMET [Concomitant]
     Dosage: UNK
     Dates: start: 20090101

REACTIONS (3)
  - HAEMATEMESIS [None]
  - PNEUMOTHORAX [None]
  - OESOPHAGEAL OBSTRUCTION [None]
